FAERS Safety Report 8902698 (Version 3)
Quarter: 2013Q2

REPORT INFORMATION
  Report Type: Report from Study
  Country: US (occurrence: US)
  Receive Date: 20121112
  Receipt Date: 20130503
  Transmission Date: 20140414
  Serious: Yes (Life-Threatening, Hospitalization, Other)
  Sender: FDA-Public Use
  Company Number: US-GENZYME-CLOF-1002340

PATIENT
  Age: 6 Year
  Sex: Male
  Weight: 20.15 kg

DRUGS (46)
  1. CLOLAR [Suspect]
     Indication: ACUTE LYMPHOCYTIC LEUKAEMIA
     Dosage: 30 MG/M2, UNK (CONSOLIDATION PART 2)
     Route: 065
     Dates: start: 20120823, end: 20120827
  2. CYCLOPHOSPHAMIDE [Suspect]
     Indication: ACUTE LYMPHOCYTIC LEUKAEMIA
     Dosage: 40 MG/M2, UNK, (CONSOLIDATION PART 2)
     Route: 065
     Dates: start: 20120720, end: 20120827
  3. ETOPOSIDE [Suspect]
     Indication: ACUTE LYMPHOCYTIC LEUKAEMIA
     Dosage: 100 MG/M2, UNK, (CONSOLIDATION PART 2)
     Route: 065
     Dates: start: 20120720, end: 20120827
  4. VINCRISTINE [Suspect]
     Indication: ACUTE LYMPHOCYTIC LEUKAEMIA
     Dosage: 1.5 MG/M2, UNK (CONSOLIDATION PART 2)
     Route: 065
     Dates: start: 20120720
  5. PEGASPARGASE [Suspect]
     Indication: ACUTE LYMPHOCYTIC LEUKAEMIA
     Dosage: 2500 IU/M2, UNK (CONSOLIDATION PART 2)
     Route: 065
     Dates: start: 20120720
  6. BACTRIM [Concomitant]
     Indication: PRODUCT USED FOR UNKNOWN INDICATION
     Dosage: 60 MG,
     Route: 065
     Dates: start: 201208, end: 201208
  7. BACTRIM [Concomitant]
     Dosage: UNK
     Route: 065
     Dates: start: 20120904, end: 20121009
  8. DEXTROSE [Concomitant]
     Indication: PRODUCT USED FOR UNKNOWN INDICATION
     Dosage: 1000 ML, DEXTROSE 5%/0.45% NACL CONTINOUS I.V. INFUSION
     Route: 042
     Dates: start: 201208, end: 201208
  9. DEXTROSE [Concomitant]
     Dosage: 1000 ML, DEXTROSE 5%/0.45% NACL CONTINOUS I.V. INFUSION POTASSIUM CHLORIDE 40MEQ
     Route: 042
     Dates: start: 201208, end: 201208
  10. DEXTROSE [Concomitant]
     Dosage: 1000 ML, DEXTROSE 5%/0.45% NACL CONTINOUS I.V. INFUSION POTASSIUM CHLORIDE 40MEQ
     Route: 042
     Dates: start: 20120904, end: 20121009
  11. PEPCID [Concomitant]
     Indication: PRODUCT USED FOR UNKNOWN INDICATION
     Dosage: 10 MG BY MOUTH EVERY 12 HOURS
     Route: 065
     Dates: start: 201208, end: 201208
  12. PEPCID [Concomitant]
     Indication: PRODUCT USED FOR UNKNOWN INDICATION
     Dosage: 10 MG, ONCE
     Route: 042
     Dates: start: 201208, end: 201208
  13. HEPARIN [Concomitant]
     Indication: PRODUCT USED FOR UNKNOWN INDICATION
     Dosage: 500 U, ONE DOSE
     Route: 042
     Dates: start: 201208, end: 201208
  14. HEPARIN [Concomitant]
     Dosage: UNK
     Route: 065
     Dates: start: 20120904, end: 20121009
  15. HYDROCORTISONE [Concomitant]
     Indication: PRODUCT USED FOR UNKNOWN INDICATION
     Dosage: 85 MG, EVERY 24 HOURS
     Route: 042
     Dates: start: 201208, end: 201208
  16. VISTARIL [Concomitant]
     Indication: PRODUCT USED FOR UNKNOWN INDICATION
     Dosage: 12.5 MG, PRN
     Route: 042
     Dates: start: 201208, end: 201208
  17. ZOFRAN [Concomitant]
     Indication: PRODUCT USED FOR UNKNOWN INDICATION
     Dosage: 4 MG, I.V PUSH EVERY 8 HOURS
     Route: 042
     Dates: start: 201208, end: 201208
  18. ZOFRAN [Concomitant]
     Dosage: UNK
     Route: 042
     Dates: start: 20120904, end: 20120910
  19. POTASSIUM CHLORIDE [Concomitant]
     Indication: PRODUCT USED FOR UNKNOWN INDICATION
     Dosage: 20 MBQ, ONE DOSE BY MOUTH
     Route: 065
     Dates: start: 201208, end: 201208
  20. ZANTAC [Concomitant]
     Indication: PRODUCT USED FOR UNKNOWN INDICATION
     Dosage: 45 MG, BY MOUTH, TWO TIMES A DAY
     Route: 065
     Dates: start: 201208, end: 201208
  21. VSL #3 PROBIOTIC [Concomitant]
     Indication: PRODUCT USED FOR UNKNOWN INDICATION
     Dosage: BY MOUTH
     Route: 065
     Dates: start: 20120904, end: 20121009
  22. VANCOMYCIN [Concomitant]
     Indication: PRODUCT USED FOR UNKNOWN INDICATION
     Dosage: UNK
     Route: 065
     Dates: start: 20120904, end: 20121009
  23. URSODIOL [Concomitant]
     Indication: PRODUCT USED FOR UNKNOWN INDICATION
     Dosage: UNK
     Route: 065
     Dates: start: 20120904, end: 20121009
  24. CAPHASOL [Concomitant]
     Indication: PRODUCT USED FOR UNKNOWN INDICATION
     Dosage: UNK
     Route: 065
     Dates: start: 20120904, end: 20121009
  25. POLYETHYLENE GLYCOL [Concomitant]
     Indication: PRODUCT USED FOR UNKNOWN INDICATION
     Dosage: UNK
     Route: 065
     Dates: start: 20120904, end: 20121009
  26. PIPERACILLIN W [Concomitant]
     Indication: PRODUCT USED FOR UNKNOWN INDICATION
     Dosage: UNK
     Route: 065
     Dates: start: 20120904, end: 20121009
  27. PENTAMIDINE [Concomitant]
     Indication: PRODUCT USED FOR UNKNOWN INDICATION
     Dosage: UNK
     Route: 065
     Dates: start: 20120904, end: 20121009
  28. PAIN EASE VAPOCOOLANTS [Concomitant]
     Indication: PRODUCT USED FOR UNKNOWN INDICATION
     Dosage: UNK
     Route: 065
     Dates: start: 20120904, end: 20121009
  29. MORPHINE [Concomitant]
     Indication: PRODUCT USED FOR UNKNOWN INDICATION
     Dosage: UNK
     Route: 065
     Dates: start: 20120904, end: 20121009
  30. METRONIDAZOLE [Concomitant]
     Indication: PRODUCT USED FOR UNKNOWN INDICATION
     Dosage: UNK
     Route: 065
     Dates: start: 20120904, end: 20121009
  31. DIPHENHYDRAMINE/SODIUM BICARBONATE/LIDOCAINE [Concomitant]
     Indication: PRODUCT USED FOR UNKNOWN INDICATION
     Dosage: UNK
     Route: 065
     Dates: start: 20120904, end: 20121009
  32. GENTAMICIN [Concomitant]
     Indication: PRODUCT USED FOR UNKNOWN INDICATION
     Dosage: UNK
     Route: 065
     Dates: start: 20120904, end: 20121009
  33. FILGRASTIM [Concomitant]
     Indication: PRODUCT USED FOR UNKNOWN INDICATION
     Dosage: UNK
     Route: 042
     Dates: start: 20120904, end: 20121009
  34. FILGRASTIM [Concomitant]
     Indication: PRODUCT USED FOR UNKNOWN INDICATION
     Dosage: UNK
     Route: 065
     Dates: start: 20120904, end: 20121009
  35. DOCUSATE SODIUM [Concomitant]
     Indication: PRODUCT USED FOR UNKNOWN INDICATION
     Dosage: BY MOUTH
     Route: 065
     Dates: start: 20120904, end: 20121009
  36. DIPHENHYDRAMINE [Concomitant]
     Indication: PRODUCT USED FOR UNKNOWN INDICATION
     Dosage: UNK
     Route: 065
     Dates: start: 20120904, end: 20121009
  37. DIPHENHYDRAMINE [Concomitant]
     Indication: PRODUCT USED FOR UNKNOWN INDICATION
     Dosage: UNK
     Route: 065
     Dates: start: 20120904, end: 20121009
  38. DIATRIZOATE MEGLUMINE AND SODIUM [Concomitant]
     Indication: PRODUCT USED FOR UNKNOWN INDICATION
     Dosage: BY MOUTH
     Route: 065
     Dates: start: 20120904, end: 20121009
  39. CYPROHEPTADINE [Concomitant]
     Indication: PRODUCT USED FOR UNKNOWN INDICATION
     Dosage: BY MOUTH
     Route: 065
     Dates: start: 20120904, end: 20121009
  40. CLINDAMYCIN [Concomitant]
     Indication: PRODUCT USED FOR UNKNOWN INDICATION
     Dosage: UNK
     Route: 065
     Dates: start: 20120904, end: 20121009
  41. CEFEPIME [Concomitant]
     Indication: PRODUCT USED FOR UNKNOWN INDICATION
     Dosage: UNK
     Route: 065
     Dates: start: 20120904, end: 20121009
  42. CHLORHEXIDINE [Concomitant]
     Indication: PRODUCT USED FOR UNKNOWN INDICATION
     Dosage: UNK
     Route: 065
     Dates: start: 20120904, end: 20121009
  43. AZITHROMYCIN [Concomitant]
     Indication: PRODUCT USED FOR UNKNOWN INDICATION
     Dosage: BY MOUTH
     Route: 065
     Dates: start: 20120904, end: 20121009
  44. AMPHOTERICIN B [Concomitant]
     Indication: PRODUCT USED FOR UNKNOWN INDICATION
     Dosage: UNK
     Route: 065
     Dates: start: 20120904, end: 20121009
  45. ALTEPLASE [Concomitant]
     Indication: PRODUCT USED FOR UNKNOWN INDICATION
     Dosage: UNK
     Route: 065
     Dates: start: 20120904, end: 20121009
  46. ACETAMINOPHEN [Concomitant]
     Indication: PRODUCT USED FOR UNKNOWN INDICATION
     Dosage: BY MOUTH
     Route: 065
     Dates: start: 20120904, end: 20121009

REACTIONS (4)
  - Lung infection [Not Recovered/Not Resolved]
  - Bone marrow failure [Not Recovered/Not Resolved]
  - Sepsis [Recovered/Resolved]
  - Sinus disorder [Not Recovered/Not Resolved]
